FAERS Safety Report 9656673 (Version 1)
Quarter: 2013Q4

REPORT INFORMATION
  Report Type: Report from Study
  Country: US (occurrence: US)
  Receive Date: 20131030
  Receipt Date: 20131030
  Transmission Date: 20140711
  Serious: Yes (Other)
  Sender: FDA-Public Use
  Company Number: US-PFIZER INC-2013308586

PATIENT
  Sex: 0

DRUGS (1)
  1. MORPHINE SULFATE [Suspect]
     Indication: PROPHYLAXIS
     Dosage: UNK

REACTIONS (3)
  - Electroencephalogram abnormal [Recovered/Resolved]
  - Convulsion [Recovered/Resolved]
  - Myoclonus [Recovered/Resolved]
